FAERS Safety Report 8503332-0 (Version None)
Quarter: 2012Q2

REPORT INFORMATION
  Report Type: 
  Country: None (occurrence: None)
  Receive Date: 20120405
  Receipt Date: 20100803
  Transmission Date: 20120825
  Serious: Yes (Other)
  Sender: FDA-Public Use
  Company Number: PHEH2010US03276

PATIENT
  Age: 88 Year
  Sex: Female
  Weight: 66 kg

DRUGS (5)
  1. CALCIUM WITH VITAMIN D (CALCIUM PHOSPHATE, CALCIUM SODIUM LACTATE, ERG [Concomitant]
  2. VITAMIN D [Concomitant]
  3. LASIX [Concomitant]
  4. ACETAMINOPHEN [Concomitant]
  5. RECLAST [Suspect]
     Indication: OSTEOPOROSIS
     Dosage: 5 MG YEARLY, INTRAVENOUS
     Route: 042
     Dates: start: 20100119

REACTIONS (3)
  - CREATININE RENAL CLEARANCE DECREASED [None]
  - GLOMERULAR FILTRATION RATE DECREASED [None]
  - RENAL IMPAIRMENT [None]
